FAERS Safety Report 6587139-X (Version None)
Quarter: 2010Q1

REPORT INFORMATION
  Report Type: 
  Country: None (occurrence: None)
  Receive Date: 20100217
  Receipt Date: 20090518
  Transmission Date: 20100710
  Serious: No
  Sender: FDA-Public Use
  Company Number: US-ALLERGAN-0905810US

PATIENT
  Sex: Male
  Weight: 96.145 kg

DRUGS (4)
  1. BOTOX [Suspect]
     Indication: BLEPHAROSPASM
     Dosage: 76 UNITS, SINGLE
     Route: 030
     Dates: start: 20090407, end: 20090407
  2. TENORMIN [Concomitant]
     Dosage: 20 MG, QD
  3. EFFEXOR [Concomitant]
  4. LUPRON [Concomitant]
     Dosage: Q 4 MONTHS

REACTIONS (3)
  - DIPLOPIA [None]
  - EYELID PTOSIS [None]
  - VISION BLURRED [None]
